FAERS Safety Report 10251046 (Version 1)
Quarter: 2014Q2

REPORT INFORMATION
  Report Type: Spontaneous
  Country: US (occurrence: US)
  Receive Date: 20140620
  Receipt Date: 20140620
  Transmission Date: 20141212
  Serious: No
  Sender: FDA-Public Use
  Company Number: US-B.I. PHARMACEUTICALS,INC./RIDGEFIELD-2014-BI-26755BP

PATIENT
  Age: 73 Year
  Sex: Female
  Weight: 91 kg

DRUGS (5)
  1. COMBIVENT [Suspect]
     Indication: ASTHMA
     Dosage: FORMULATION: RESPIMAT INHALATION SPRAY, STRENGTH: 20 MCG / 100 MCG; DAILY DOSE: 80 MCG/400MCG
     Route: 055
     Dates: start: 20130604, end: 20130605
  2. ATORVASTATIN [Concomitant]
     Indication: BLOOD CHOLESTEROL INCREASED
     Dosage: 40 MG
     Route: 048
     Dates: start: 2014
  3. NORVASC [Concomitant]
     Indication: HYPERTENSION
     Dosage: 5 MG
     Route: 048
  4. ASPIRIN [Concomitant]
     Dosage: 81 MG
     Route: 048
  5. ALPRAZOLAM [Concomitant]
     Indication: ILL-DEFINED DISORDER
     Dosage: 1 MG
     Route: 048

REACTIONS (2)
  - Gait disturbance [Recovered/Resolved]
  - Off label use [Recovered/Resolved]
